FAERS Safety Report 15967345 (Version 1)
Quarter: 2019Q1

REPORT INFORMATION
  Report Type: Spontaneous
  Country: US (occurrence: US)
  Receive Date: 20190124
  Receipt Date: 20190124
  Transmission Date: 20190418
  Serious: Yes (Other)
  Sender: FDA-Public Use
  Company Number: None

PATIENT
  Age: 84 Year
  Sex: Female
  Weight: 70.31 kg

DRUGS (11)
  1. RED YEAST RICE [Concomitant]
     Active Substance: DIETARY SUPPLEMENT
  2. ASA [Concomitant]
     Active Substance: ASPIRIN
  3. ALLOPURINOL. [Concomitant]
     Active Substance: ALLOPURINOL
  4. TYLENOL [Concomitant]
     Active Substance: ACETAMINOPHEN
  5. VALSARTAN. [Suspect]
     Active Substance: VALSARTAN
  6. LANTUS [Concomitant]
     Active Substance: INSULIN GLARGINE
  7. COQ10 [Concomitant]
     Active Substance: UBIDECARENONE
  8. HUMALOG [Concomitant]
     Active Substance: INSULIN LISPRO
  9. LOSARTAN. [Suspect]
     Active Substance: LOSARTAN
     Indication: HYPERTENSION
     Dosage: ?          QUANTITY:100 MG MILLIGRAM(S);?
     Route: 048
     Dates: start: 20181031, end: 20190111
  10. LOSARTAN. [Suspect]
     Active Substance: LOSARTAN
     Dosage: ?          QUANTITY:50 MG MILLIGRAM(S);?
  11. LEVOTHYROXINE. [Concomitant]
     Active Substance: LEVOTHYROXINE

REACTIONS (5)
  - Presyncope [None]
  - Balance disorder [None]
  - Asthenia [None]
  - Blood pressure orthostatic abnormal [None]
  - Dizziness [None]

NARRATIVE: CASE EVENT DATE: 20181116
